FAERS Safety Report 8058286-0 (Version None)
Quarter: 2012Q1

REPORT INFORMATION
  Report Type: 
  Country: None (occurrence: None)
  Receive Date: 20120112
  Receipt Date: 20111228
  Transmission Date: 20120608
  Serious: Yes (Hospitalization, Other)
  Sender: FDA-Public Use
  Company Number: 2011MA018100

PATIENT
  Age: 9 Month
  Sex: Male

DRUGS (7)
  1. ACYCLOVIR [Suspect]
     Indication: ENCEPHALITIS
     Dosage: 60 MG/KG/DAY
  2. CEFTRIAXONE [Suspect]
     Dosage: 100 MG/KG/DAY;IV
     Route: 042
  3. VANCOMYCIN [Suspect]
     Dosage: 60 MG/KG/DAY
  4. PHENOBARBITAL TAB [Suspect]
     Indication: CONVULSION
     Dosage: 5 MG/KG/DAY;IV
     Route: 042
  5. AMPICILLIN [Suspect]
     Indication: PYREXIA
     Dosage: 40 MG/KG/DAY
  6. PHENYTOIN [Suspect]
     Indication: CONVULSION
     Dosage: 10 MG/KG/DAY;IV
     Route: 042
  7. MIDAZOLAM HCL [Suspect]
     Indication: CONVULSION
     Dosage: 2 MG/KG/MIN;IV
     Route: 042

REACTIONS (1)
  - ENCEPHALITIS HERPES [None]
